FAERS Safety Report 4930386-0 (Version None)
Quarter: 2006Q1

REPORT INFORMATION
  Report Type: 
  Country: None (occurrence: None)
  Receive Date: 20060302
  Receipt Date: 20060301
  Transmission Date: 20060701
  Serious: Yes (Other)
  Sender: FDA-Public Use
  Company Number: US-GLAXOSMITHKLINE-A0595691A

PATIENT
  Age: 86 Year
  Sex: Female

DRUGS (14)
  1. UREA PEROXIDE [Suspect]
     Indication: CERUMEN IMPACTION
     Route: 001
     Dates: start: 20060201, end: 20060227
  2. METFORMIN [Concomitant]
  3. ZOCOR [Concomitant]
  4. HYDROCHLOROTHIAZIDE [Concomitant]
  5. ATENOLOL [Concomitant]
  6. ASPIRIN [Concomitant]
  7. NORVASC [Concomitant]
  8. ARICEPT [Concomitant]
  9. ZYRTEC [Concomitant]
  10. DESOXIMETASONE [Concomitant]
  11. GLIMEPIRIDE [Concomitant]
  12. CEFADROXIL [Concomitant]
  13. ISOSORBIDE [Concomitant]
  14. BENICAR [Concomitant]

REACTIONS (2)
  - DEAFNESS [None]
  - DRUG INEFFECTIVE [None]
